FAERS Safety Report 7115739-7 (Version None)
Quarter: 2010Q4

REPORT INFORMATION
  Report Type: 
  Country: None (occurrence: None)
  Receive Date: 20101122
  Receipt Date: 20101116
  Transmission Date: 20110411
  Serious: Yes (Death, Hospitalization)
  Sender: FDA-Public Use
  Company Number: PHHY2010EC77943

PATIENT
  Age: 63 Year
  Sex: Female

DRUGS (3)
  1. EXFORGE [Suspect]
     Indication: HYPERTENSION
     Dosage: 1 DF, QD
     Dates: start: 20100401
  2. ORAL ANTIDIABETICS [Concomitant]
     Dosage: UNK
  3. MONOCLONAL ANTIBODIES [Concomitant]
     Dosage: UNK

REACTIONS (1)
  - PNEUMONIA [None]
